FAERS Safety Report 9199723 (Version 1)
Quarter: 2013Q1

REPORT INFORMATION
  Report Type: Spontaneous
  Country: US (occurrence: None)
  Receive Date: 20130327
  Receipt Date: 20130327
  Transmission Date: 20140127
  Serious: Yes (Life-Threatening, Disabling, Other)
  Sender: FDA-Public Use
  Company Number: None

PATIENT
  Sex: Male
  Weight: 89.81 kg

DRUGS (1)
  1. ZYPREXA [Suspect]
     Indication: BIPOLAR DISORDER
     Dosage: 5 MG AT HS ONCE DAILY
     Dates: start: 2001, end: 201111

REACTIONS (4)
  - Dizziness [None]
  - Fall [None]
  - Paralysis [None]
  - Product quality issue [None]
